FAERS Safety Report 25496869 (Version 2)
Quarter: 2025Q4

REPORT INFORMATION
  Report Type: Report from Study
  Country: PK (occurrence: PK)
  Receive Date: 20250701
  Receipt Date: 20251114
  Transmission Date: 20260118
  Serious: Yes (Death)
  Sender: ROCHE
  Company Number: PK-ROCHE-10000325151

PATIENT
  Age: 42 Year
  Sex: Female

DRUGS (1)
  1. AVASTIN [Suspect]
     Active Substance: BEVACIZUMAB
     Indication: Ovarian cancer
     Route: 042
     Dates: start: 20250407

REACTIONS (4)
  - Vomiting [Fatal]
  - Loss of consciousness [Fatal]
  - Diarrhoea [Fatal]
  - Disease progression [Fatal]

NARRATIVE: CASE EVENT DATE: 20250510
